FAERS Safety Report 16882543 (Version 2)
Quarter: 2021Q2

REPORT INFORMATION
  Report Type: Report from Study
  Country: None (occurrence: BE)
  Receive Date: 20191003
  Receipt Date: 20210430
  Transmission Date: 20210716
  Serious: Yes (Hospitalization)
  Sender: FDA-Public Use
  Company Number: BE-ABBVIE-19P-013-2939657-00

PATIENT
  Age: 56 Year
  Sex: Male

DRUGS (7)
  1. IMODIUM [Concomitant]
     Active Substance: LOPERAMIDE HYDROCHLORIDE
     Indication: COLITIS ULCERATIVE
     Route: 048
     Dates: start: 2008
  2. PANTOMED [Concomitant]
     Indication: DYSPHAGIA
     Route: 048
     Dates: start: 20180118
  3. PULMICORT TURBUHALER [Concomitant]
     Active Substance: BUDESONIDE
     Indication: COUGH
     Route: 055
     Dates: start: 20190206
  4. PARACETAMOL [Concomitant]
     Active Substance: ACETAMINOPHEN
     Route: 048
     Dates: start: 20181224, end: 2019
  5. SYMBICORT [Concomitant]
     Active Substance: BUDESONIDE\FORMOTEROL FUMARATE DIHYDRATE
     Indication: COUGH
     Route: 055
     Dates: start: 20190109, end: 20190130
  6. HUMIRA [Suspect]
     Active Substance: ADALIMUMAB
     Indication: COLITIS ULCERATIVE
     Route: 058
     Dates: start: 20090320
  7. PARACETAMOL [Concomitant]
     Active Substance: ACETAMINOPHEN
     Indication: BACK PAIN
     Route: 048
     Dates: start: 201605, end: 2016

REACTIONS (1)
  - Pneumonia [Recovered/Resolved]

NARRATIVE: CASE EVENT DATE: 20181224
